FAERS Safety Report 15959521 (Version 3)
Quarter: 2019Q2

REPORT INFORMATION
  Report Type: Report from Study
  Country: CO (occurrence: CO)
  Receive Date: 20190214
  Receipt Date: 20190409
  Transmission Date: 20190711
  Serious: Yes (Hospitalization)
  Sender: FDA-Public Use
  Company Number: CO-ASTELLAS-2019US004889

PATIENT
  Age: 73 Year
  Sex: Male
  Weight: 64 kg

DRUGS (3)
  1. TACROLIMUS. [Suspect]
     Active Substance: TACROLIMUS
     Indication: RENAL TRANSPLANT
     Route: 048
     Dates: start: 20151215
  2. TACROLIMUS. [Suspect]
     Active Substance: TACROLIMUS
     Route: 048
  3. MYCOPHENOLATE [Concomitant]
     Active Substance: MYCOPHENOLIC ACID
     Indication: TRANSPLANT
     Route: 048

REACTIONS (9)
  - Anaemia [Recovering/Resolving]
  - Immunosuppressant drug level increased [Recovered/Resolved]
  - Diabetic ketoacidosis [Recovered/Resolved]
  - Decreased immune responsiveness [Unknown]
  - Fungal rhinitis [Recovered/Resolved]
  - Pyrexia [Unknown]
  - Pain [Unknown]
  - Inflammation [Unknown]
  - Bone abscess [Recovering/Resolving]

NARRATIVE: CASE EVENT DATE: 20190104
